FAERS Safety Report 4784832-6 (Version None)
Quarter: 2005Q3

REPORT INFORMATION
  Report Type: 
  Country: None (occurrence: None)
  Receive Date: 20050928
  Receipt Date: 20050912
  Transmission Date: 20060218
  Serious: Yes (Death)
  Sender: FDA-Public Use
  Company Number: 217675

PATIENT
  Age: 68 Year
  Sex: Male

DRUGS (9)
  1. RITUXAN [Suspect]
     Indication: NON-HODGKIN'S LYMPHOMA
     Dosage: SEE IMAGE
     Route: 042
     Dates: start: 20050628, end: 20050628
  2. RITUXAN [Suspect]
     Indication: NON-HODGKIN'S LYMPHOMA
     Dosage: SEE IMAGE
     Route: 042
     Dates: start: 20050531, end: 20050726
  3. RITUXAN [Suspect]
     Indication: NON-HODGKIN'S LYMPHOMA
     Dosage: SEE IMAGE
     Route: 042
     Dates: start: 20050726, end: 20050726
  4. CYCLOPHOSPHAMIDE [Concomitant]
  5. ADRIAMYCIN PFS [Concomitant]
  6. DOXORUBICIN HCL [Concomitant]
  7. ONCOVIN [Concomitant]
  8. PREDONINE (PREDNISOLONE SODIUM SUCCINATE, PREDNISOLONE ACETATE, PREDNI [Concomitant]
  9. NARTOGRASTIM (NARTOGRASTIM) [Concomitant]

REACTIONS (1)
  - ACUTE RESPIRATORY DISTRESS SYNDROME [None]
